FAERS Safety Report 24994252 (Version 1)
Quarter: 2025Q1

REPORT INFORMATION
  Report Type: Spontaneous
  Country: US (occurrence: None)
  Receive Date: 20250220
  Receipt Date: 20250220
  Transmission Date: 20250408
  Serious: No
  Sender: FDA-CTU
  Company Number: None

PATIENT
  Age: 77 Year
  Sex: Female
  Weight: 84 kg

DRUGS (1)
  1. AMANTADINE HYDROCHLORIDE [Suspect]
     Active Substance: AMANTADINE HYDROCHLORIDE
     Indication: Parkinson^s disease

REACTIONS (4)
  - Hallucination, visual [None]
  - Hallucination, auditory [None]
  - Loss of personal independence in daily activities [None]
  - Therapeutic product effect decreased [None]

NARRATIVE: CASE EVENT DATE: 20240918
